FAERS Safety Report 11118331 (Version 1)
Quarter: 2015Q2

REPORT INFORMATION
  Report Type: Report from Study
  Country: IN (occurrence: IN)
  Receive Date: 20150518
  Receipt Date: 20150518
  Transmission Date: 20150821
  Serious: Yes (Death)
  Sender: FDA-Public Use
  Company Number: IN-ROCHE-1578109

PATIENT
  Sex: Male

DRUGS (3)
  1. TOCILIZUMAB [Suspect]
     Active Substance: TOCILIZUMAB
     Indication: JUVENILE IDIOPATHIC ARTHRITIS
     Route: 042
     Dates: start: 20130306, end: 20150206
  2. SHELCAL [Concomitant]
     Route: 065
     Dates: start: 20140130
  3. PREDNISOLONE. [Concomitant]
     Active Substance: PREDNISOLONE
     Dosage: 1/4 ONCE A DAY
     Route: 065
     Dates: start: 20140130

REACTIONS (2)
  - Renal failure [Fatal]
  - Pneumonia [Fatal]
